FAERS Safety Report 5039285-X (Version None)
Quarter: 2006Q2

REPORT INFORMATION
  Report Type: 
  Country: None (occurrence: None)
  Receive Date: 20060629
  Receipt Date: 20060621
  Transmission Date: 20061013
  Serious: Yes (Hospitalization)
  Sender: FDA-Public Use
  Company Number: FR-ROCHE-452750

PATIENT
  Age: 83 Year
  Sex: Male
  Weight: 50 kg

DRUGS (4)
  1. ROCEPHIN [Suspect]
     Indication: DRUG USE FOR UNKNOWN INDICATION
     Route: 042
     Dates: start: 20060103, end: 20060112
  2. COUMADIN [Suspect]
     Indication: DRUG USE FOR UNKNOWN INDICATION
     Route: 048
     Dates: start: 20051226, end: 20060102
  3. DISTILBENE [Concomitant]
  4. CALCIPARINE [Concomitant]
     Dosage: AT AN UNKNOWN DATE THE DOSAGE WAS INCREASED FROM 0.2 TO 0.4 ML TWICE DAILY.
     Dates: start: 20051213, end: 20051229

REACTIONS (4)
  - HAEMATURIA [None]
  - HYPOVITAMINOSIS [None]
  - INTERNATIONAL NORMALISED RATIO INCREASED [None]
  - PROTHROMBIN TIME SHORTENED [None]
